FAERS Safety Report 4697537-7 (Version None)
Quarter: 2005Q2

REPORT INFORMATION
  Report Type: 
  Country: None (occurrence: None)
  Receive Date: 20050621
  Receipt Date: 20050606
  Transmission Date: 20051028
  Serious: Yes (Death, Other)
  Sender: FDA-Public Use
  Company Number: USA050699808

PATIENT
  Age: 49 Year
  Sex: Male

DRUGS (1)
  1. GEMZAR [Suspect]
     Indication: PANCREATIC CARCINOMA
     Dosage: 1800 MG
     Dates: start: 20050510, end: 20050524

REACTIONS (4)
  - BILIARY TRACT DISORDER [None]
  - DISEASE PROGRESSION [None]
  - OBSTRUCTION [None]
  - SEPSIS [None]
